FAERS Safety Report 24796712 (Version 1)
Quarter: 2025Q1

REPORT INFORMATION
  Report Type: Spontaneous
  Country: US (occurrence: US)
  Receive Date: 20250101
  Receipt Date: 20250101
  Transmission Date: 20250409
  Serious: No
  Sender: BAXTER
  Company Number: US-BAXTER-2025BAX009686

PATIENT
  Sex: Male

DRUGS (1)
  1. PENICILLIN G [Suspect]
     Active Substance: PENICILLIN G
     Route: 065

REACTIONS (1)
  - Drug hypersensitivity [Unknown]
